FAERS Safety Report 18507919 (Version 1)
Quarter: 2020Q4

REPORT INFORMATION
  Report Type: Spontaneous
  Country: TW (occurrence: TW)
  Receive Date: 20201116
  Receipt Date: 20201116
  Transmission Date: 20210114
  Serious: Yes (Death, Hospitalization, Other)
  Sender: FDA-Public Use
  Company Number: TW-PFIZER INC-2020448128

PATIENT
  Age: 83 Year
  Sex: Female

DRUGS (13)
  1. PROLIA [Suspect]
     Active Substance: DENOSUMAB
     Indication: SJOGREN^S SYNDROME
     Dosage: 60 MG (SYRINGE)
     Route: 058
     Dates: start: 20201015
  2. VITAMIN K1 [Suspect]
     Active Substance: PHYTONADIONE
     Indication: PROTHROMBIN TIME PROLONGED
     Dosage: 10 MG, 1X/DAY (10MG/AMP)
     Dates: start: 20201020
  3. TREXAN [METHOTREXATE SODIUM] [Suspect]
     Active Substance: METHOTREXATE SODIUM
     Indication: OSTEOPOROSIS
  4. TREXAN [METHOTREXATE SODIUM] [Suspect]
     Active Substance: METHOTREXATE SODIUM
     Indication: SJOGREN^S SYNDROME
     Dosage: UNK
     Route: 048
     Dates: start: 202008, end: 20201008
  5. PROLIA [Suspect]
     Active Substance: DENOSUMAB
     Indication: OSTEOPOROSIS
  6. FORTEO [Suspect]
     Active Substance: TERIPARATIDE
     Indication: SJOGREN^S SYNDROME
     Dosage: UNK (250MCG/ML 2.4ML)
     Route: 058
     Dates: start: 20201015
  7. FORTEO [Suspect]
     Active Substance: TERIPARATIDE
     Indication: OSTEOPOROSIS
  8. HYDROXYCHLOROQUINE [Suspect]
     Active Substance: HYDROXYCHLOROQUINE
     Indication: SJOGREN^S SYNDROME
     Dosage: UNK
     Dates: start: 202008, end: 20201008
  9. FOLIC ACID. [Suspect]
     Active Substance: FOLIC ACID
     Indication: SJOGREN^S SYNDROME
     Dosage: UNK
     Dates: start: 202008, end: 20201008
  10. CHOLECALCIFEROL [Suspect]
     Active Substance: CHOLECALCIFEROL
     Indication: SJOGREN^S SYNDROME
     Dosage: UNK
     Dates: start: 202008, end: 20201008
  11. ENTECAVIR. [Suspect]
     Active Substance: ENTECAVIR
     Indication: HEPATITIS ACUTE
     Dosage: 0.5 MG, 1X/DAY (0.5MG 1# QD)
     Dates: start: 20201020
  12. PREDNISOLONE. [Suspect]
     Active Substance: PREDNISOLONE
     Indication: SJOGREN^S SYNDROME
     Dosage: UNK
     Dates: start: 202008, end: 20201008
  13. TRICALCIUM PHOSPHATE [Suspect]
     Active Substance: TRICALCIUM PHOSPHATE
     Indication: SJOGREN^S SYNDROME
     Dosage: UNK
     Dates: start: 202008, end: 20201008

REACTIONS (8)
  - Product use in unapproved indication [Unknown]
  - Hypotension [Fatal]
  - Hepatic failure [Fatal]
  - Hepatitis acute [Fatal]
  - Jaundice [Fatal]
  - Respiratory failure [Fatal]
  - Off label use [Unknown]
  - Asthma [Fatal]

NARRATIVE: CASE EVENT DATE: 202008
